FAERS Safety Report 22359807 (Version 1)
Quarter: 2023Q2

REPORT INFORMATION
  Report Type: Spontaneous
  Country: JP (occurrence: JP)
  Receive Date: 20230524
  Receipt Date: 20230524
  Transmission Date: 20230722
  Serious: Yes (Hospitalization, Other)
  Sender: FDA-Public Use
  Company Number: JP-MSD-M2023-19531

PATIENT
  Age: 73 Year
  Sex: Female

DRUGS (1)
  1. KEYTRUDA [Suspect]
     Active Substance: PEMBROLIZUMAB
     Indication: Hodgkin^s disease
     Dosage: 200 MILLIGRAM, Q3W
     Route: 041

REACTIONS (16)
  - COVID-19 [Unknown]
  - Gastric ulcer [Unknown]
  - Pulmonary oedema [Unknown]
  - Altered state of consciousness [Unknown]
  - Delirium [Unknown]
  - Gastritis erosive [Unknown]
  - Vomiting [Not Recovered/Not Resolved]
  - Diarrhoea [Not Recovered/Not Resolved]
  - Pyrexia [Not Recovered/Not Resolved]
  - Blood pressure decreased [Unknown]
  - Memory impairment [Unknown]
  - Feeding disorder [Not Recovered/Not Resolved]
  - Enteritis [Unknown]
  - Decreased appetite [Unknown]
  - Blood albumin decreased [Unknown]
  - Urticaria [Unknown]
